FAERS Safety Report 15272742 (Version 3)
Quarter: 2019Q1

REPORT INFORMATION
  Report Type: Spontaneous
  Country: US (occurrence: US)
  Receive Date: 20180813
  Receipt Date: 20190326
  Transmission Date: 20190417
  Serious: Yes (Other)
  Sender: FDA-Public Use
  Company Number: US-PFIZER INC-2018320680

PATIENT
  Age: 41 Year
  Sex: Female
  Weight: 141 kg

DRUGS (2)
  1. LYRICA [Suspect]
     Active Substance: PREGABALIN
     Indication: MIGRAINE
     Dosage: 150 MG, 2X/DAY
     Route: 048
     Dates: start: 201806
  2. LYRICA [Suspect]
     Active Substance: PREGABALIN
     Indication: TRIGEMINAL NEURALGIA
     Dosage: 75 MG, 2X/DAY
     Route: 048
     Dates: start: 201806

REACTIONS (8)
  - Headache [Unknown]
  - Weight increased [Unknown]
  - Withdrawal syndrome [Not Recovered/Not Resolved]
  - Diarrhoea [Unknown]
  - Crying [Unknown]
  - Nausea [Unknown]
  - Irritability [Unknown]
  - Social avoidant behaviour [Unknown]

NARRATIVE: CASE EVENT DATE: 20180731
